FAERS Safety Report 22156975 (Version 2)
Quarter: 2023Q2

REPORT INFORMATION
  Report Type: Spontaneous
  Country: JP (occurrence: JP)
  Receive Date: 20230330
  Receipt Date: 20230515
  Transmission Date: 20230722
  Serious: Yes (Hospitalization, Other)
  Sender: FDA-Public Use
  Company Number: JP-PFIZER INC-PV202300057459

PATIENT
  Age: 35 Year
  Sex: Male
  Weight: 61.6 kg

DRUGS (19)
  1. METHOTREXATE SODIUM [Suspect]
     Active Substance: METHOTREXATE SODIUM
     Indication: Acute lymphocytic leukaemia
     Dosage: 539 MG, 1X/DAY
     Route: 041
     Dates: start: 20221115, end: 20221115
  2. METHOTREXATE SODIUM [Suspect]
     Active Substance: METHOTREXATE SODIUM
     Dosage: 4846 MG, 1X/DAY
     Route: 041
     Dates: start: 20221115, end: 20221115
  3. DIAMOX SEQUELS [Concomitant]
     Active Substance: ACETAZOLAMIDE
  4. MEYLON [Concomitant]
     Active Substance: SODIUM BICARBONATE
  5. LEUCOVORIN [Concomitant]
     Active Substance: LEUCOVORIN
     Dosage: 150 MG, Q6H
     Dates: start: 20221117, end: 202211
  6. LEUCOVORIN [Concomitant]
     Active Substance: LEUCOVORIN
     Dosage: 54 MG, Q6H
     Dates: start: 20221124, end: 202211
  7. LEUCOVORIN [Concomitant]
     Active Substance: LEUCOVORIN
     Dosage: 27MG, Q6H
     Dates: start: 20221128, end: 20221202
  8. CYTARABINE [Concomitant]
     Active Substance: CYTARABINE
  9. PREDONINE [Concomitant]
     Active Substance: PREDNISOLONE
  10. HYDROCORTISONE [Concomitant]
     Active Substance: HYDROCORTISONE
  11. ACETAMINOPHEN [Concomitant]
     Active Substance: ACETAMINOPHEN
  12. FAMOTIDINE [Concomitant]
     Active Substance: FAMOTIDINE
  13. ITRACONAZOLE [Concomitant]
     Active Substance: ITRACONAZOLE
  14. CLONAZEPAM [Concomitant]
     Active Substance: CLONAZEPAM
  15. MAGNESIUM OXIDE [Concomitant]
     Active Substance: MAGNESIUM OXIDE
  16. PANTETHINE [Concomitant]
     Active Substance: PANTETHINE
  17. HERBALS [Concomitant]
     Active Substance: HERBALS
  18. MOSAPRIDE [Concomitant]
     Active Substance: MOSAPRIDE
  19. MERCAPTOPURINE [Concomitant]
     Active Substance: MERCAPTOPURINE

REACTIONS (2)
  - Renal impairment [Recovered/Resolved]
  - Nephropathy toxic [Recovered/Resolved]

NARRATIVE: CASE EVENT DATE: 20221117
